FAERS Safety Report 5098134-4 (Version None)
Quarter: 2006Q3

REPORT INFORMATION
  Report Type: 
  Country: None (occurrence: None)
  Receive Date: 20060906
  Receipt Date: 20060424
  Transmission Date: 20061208
  Serious: No
  Sender: FDA-Public Use
  Company Number: US-GLAXOSMITHKLINE-A0603018A

PATIENT
  Sex: Female

DRUGS (9)
  1. REQUIP [Suspect]
     Indication: RESTLESS LEGS SYNDROME
     Dosage: 5MG PER DAY
     Route: 048
  2. COREG [Concomitant]
  3. FLEXERIL [Concomitant]
  4. LEVOXYL [Concomitant]
  5. PLAVIX [Concomitant]
  6. ALTACE [Concomitant]
  7. PROTONIX [Concomitant]
  8. ALTOPREV [Concomitant]
  9. ALLEGRA [Concomitant]

REACTIONS (3)
  - MEDICATION ERROR [None]
  - OVERDOSE [None]
  - PELVIC DISCOMFORT [None]
